FAERS Safety Report 9786511 (Version 1)
Quarter: 2013Q4

REPORT INFORMATION
  Report Type: Spontaneous
  Country: US (occurrence: US)
  Receive Date: 20131227
  Receipt Date: 20131227
  Transmission Date: 20140711
  Serious: Yes (Other)
  Sender: FDA-Public Use
  Company Number: US-PERRIGO-13US013091

PATIENT
  Age: 94 Year
  Sex: Female

DRUGS (2)
  1. IBUPROFEN 200 MG 604 [Suspect]
     Indication: PAIN
     Dosage: 200 MG, BID
     Route: 048
  2. IBUPROFEN 200 MG 604 [Suspect]
     Indication: ANALGESIC THERAPY
     Dosage: 800 MG, TID
     Route: 048

REACTIONS (1)
  - Hyponatraemia [Recovered/Resolved]
